FAERS Safety Report 9381226 (Version 1)
Quarter: 2013Q3

REPORT INFORMATION
  Report Type: Spontaneous
  Country: BE (occurrence: BE)
  Receive Date: 20130703
  Receipt Date: 20130703
  Transmission Date: 20140515
  Serious: Yes (Other)
  Sender: FDA-Public Use
  Company Number: BE-ROCHE-1241749

PATIENT
  Age: 58 Year
  Sex: Female
  Weight: 74 kg

DRUGS (12)
  1. HERCEPTIN [Suspect]
     Indication: BREAST CANCER METASTATIC
     Route: 065
     Dates: start: 201001
  2. HERCEPTIN [Suspect]
     Route: 065
     Dates: start: 201209
  3. HERCEPTIN [Suspect]
     Route: 065
     Dates: start: 201302
  4. ZOMETA [Suspect]
     Indication: BREAST CANCER METASTATIC
     Route: 065
     Dates: start: 201001
  5. XELODA [Suspect]
     Indication: BREAST CANCER METASTATIC
     Route: 065
     Dates: start: 201108
  6. TYVERB [Suspect]
     Indication: BREAST CANCER METASTATIC
     Route: 065
     Dates: start: 201108
  7. XGEVA [Suspect]
     Indication: BREAST CANCER METASTATIC
     Route: 065
     Dates: start: 201209
  8. XGEVA [Suspect]
     Route: 065
     Dates: start: 201302
  9. NAVELBINE [Suspect]
     Indication: BREAST CANCER METASTATIC
     Route: 065
     Dates: start: 201209
  10. MEDROXYPROGESTERONE [Suspect]
     Indication: BREAST CANCER METASTATIC
     Route: 065
     Dates: start: 201301
  11. TAXOTERE [Suspect]
     Indication: BREAST CANCER METASTATIC
     Route: 065
     Dates: start: 201302
  12. PACLITAXEL [Suspect]
     Indication: BREAST CANCER METASTATIC
     Route: 065
     Dates: start: 201007

REACTIONS (9)
  - Palmar-plantar erythrodysaesthesia syndrome [Unknown]
  - Deep vein thrombosis [Unknown]
  - Disease progression [Unknown]
  - Nail toxicity [Unknown]
  - Synovial cyst [Unknown]
  - Lymphadenopathy [Unknown]
  - Metastases to meninges [Unknown]
  - Lymphadenopathy [Unknown]
  - Ill-defined disorder [Unknown]
